FAERS Safety Report 10030729 (Version 2)
Quarter: 2016Q2

REPORT INFORMATION
  Report Type: Spontaneous
  Country: US (occurrence: US)
  Receive Date: 20140323
  Receipt Date: 20160415
  Transmission Date: 20160815
  Serious: No
  Sender: FDA-Public Use
  Company Number: US-ALLERGAN-1401539US

PATIENT
  Sex: Female

DRUGS (3)
  1. LATISSE [Suspect]
     Active Substance: BIMATOPROST
     Dosage: UNK, QHS
     Route: 061
     Dates: start: 20140125, end: 20140125
  2. LATISSE [Suspect]
     Active Substance: BIMATOPROST
     Dosage: UNK
     Route: 061
  3. LATISSE [Suspect]
     Active Substance: BIMATOPROST
     Indication: GROWTH OF EYELASHES
     Dosage: 2 GTT, QPM
     Route: 061

REACTIONS (11)
  - Eyelid sensory disorder [Recovered/Resolved]
  - Eyelid irritation [Recovering/Resolving]
  - Ocular hyperaemia [Unknown]
  - Incorrect dose administered [Unknown]
  - Eye infection [Unknown]
  - Blepharal pigmentation [Recovered/Resolved]
  - Inappropriate schedule of drug administration [Unknown]
  - Eye pain [Unknown]
  - Eye discharge [Unknown]
  - Eye irritation [Recovering/Resolving]
  - Eye disorder [Unknown]
